FAERS Safety Report 22210820 (Version 1)
Quarter: 2023Q2

REPORT INFORMATION
  Report Type: Spontaneous
  Country: AT (occurrence: AT)
  Receive Date: 20230414
  Receipt Date: 20230414
  Transmission Date: 20230722
  Serious: Yes (Hospitalization, Other)
  Sender: FDA-Public Use
  Company Number: AT-CELGENE-AUT-20220202958

PATIENT
  Age: 82 Year
  Sex: Female
  Weight: 80.9 kg

DRUGS (42)
  1. AZACITIDINE [Suspect]
     Active Substance: AZACITIDINE
     Indication: Myelodysplastic syndrome
     Dosage: FREQUENCY TEXT: 7 DAYS WITHIN FIRST 9 CALENDAR DAYS
     Route: 058
     Dates: start: 20211220, end: 20220120
  2. AZACITIDINE [Suspect]
     Active Substance: AZACITIDINE
     Dosage: FREQUENCY TEXT: 7 DAYS WITHIN FIRST 9 CALENDAR DAYS?75 MILLIGRAM/SQ. METER
     Route: 058
     Dates: start: 20211220, end: 20220120
  3. AZACITIDINE [Suspect]
     Active Substance: AZACITIDINE
     Dosage: FREQUENCY TEXT: 7 DAYS WITHIN FIRST 9 CALENDAR DAYS?37.5 MILLIGRAM/SQ. METER
     Route: 058
     Dates: start: 20220121
  4. VENETOCLAX [Suspect]
     Active Substance: VENETOCLAX
     Indication: Myelodysplastic syndrome
     Dosage: DAYS 1 - 14 OF EACH 28-DAY CYCLE, EVERY 1 DAYS
     Route: 048
     Dates: start: 20211220
  5. ASPIRIN [Concomitant]
     Active Substance: ASPIRIN
     Indication: Carotid artery stenosis
     Dosage: 100 MILLIGRAM
     Route: 048
     Dates: start: 2013, end: 20211228
  6. ASPIRIN [Concomitant]
     Active Substance: ASPIRIN
     Dosage: 100 MILLIGRAM
     Route: 048
     Dates: start: 20220112
  7. HYDROMORPHONE HYDROCHLORIDE [Concomitant]
     Active Substance: HYDROMORPHONE HYDROCHLORIDE
     Indication: Back pain
     Dosage: 4 MILLIGRAM
     Route: 048
     Dates: start: 20211216, end: 20211220
  8. HYDROMORPHONE HYDROCHLORIDE [Concomitant]
     Active Substance: HYDROMORPHONE HYDROCHLORIDE
     Dosage: 8 MILLIGRAM
     Route: 048
     Dates: start: 20211220, end: 20211228
  9. HYDROMORPHONE HYDROCHLORIDE [Concomitant]
     Active Substance: HYDROMORPHONE HYDROCHLORIDE
     Dosage: FREQUENCY TEXT: PRN?2.6 MILLIGRAM
     Route: 048
     Dates: start: 20211226
  10. HYDROMORPHONE HYDROCHLORIDE [Concomitant]
     Active Substance: HYDROMORPHONE HYDROCHLORIDE
     Dosage: 12 MILLIGRAM
     Route: 048
     Dates: start: 20211228, end: 20220103
  11. HYDROMORPHONE HYDROCHLORIDE [Concomitant]
     Active Substance: HYDROMORPHONE HYDROCHLORIDE
     Dosage: 16 MILLIGRAM
     Route: 048
     Dates: start: 20220103, end: 20220124
  12. HYDROMORPHONE HYDROCHLORIDE [Concomitant]
     Active Substance: HYDROMORPHONE HYDROCHLORIDE
     Dosage: 12 MILLIGRAM
     Route: 048
     Dates: start: 20220124
  13. LASIX [Concomitant]
     Active Substance: FUROSEMIDE
     Indication: Oedema
     Dosage: 40 MILLIGRAM
     Route: 048
     Dates: start: 202006
  14. LASIX [Concomitant]
     Active Substance: FUROSEMIDE
     Dosage: FREQUENCY TEXT: PRN
     Route: 048
     Dates: start: 20211231
  15. ONDANSETRON HYDROCHLORIDE [Concomitant]
     Active Substance: ONDANSETRON HYDROCHLORIDE
     Indication: Nausea
     Dosage: FREQUENCY TEXT: PRN
     Route: 048
     Dates: start: 20220201
  16. MAGNESIUM CITRATE [Concomitant]
     Active Substance: MAGNESIUM CITRATE
     Indication: Magnesium deficiency
     Dosage: FREQUENCY TEXT: PRN
     Route: 048
     Dates: start: 20220102
  17. BISOPROLOL FUMARATE [Concomitant]
     Active Substance: BISOPROLOL FUMARATE
     Indication: Hypertension
     Dosage: FREQUENCY TEXT: 1/2-0-0?5 MILLIGRAM
     Route: 048
     Dates: start: 202006, end: 20201227
  18. BISOPROLOL FUMARATE [Concomitant]
     Active Substance: BISOPROLOL FUMARATE
     Indication: Arteriosclerosis coronary artery
     Dosage: FREQUENCY TEXT: 1/2-0-0?5 MILLIGRAM
     Route: 048
     Dates: start: 20211228
  19. GLANDOMED [Concomitant]
     Indication: Oral candidiasis
     Dosage: FREQUENCY TEXT: PRN
     Route: 048
     Dates: start: 20211231
  20. MOTILIUM [Concomitant]
     Active Substance: DOMPERIDONE
     Indication: Prophylaxis of nausea and vomiting
     Dosage: 10 MILLIGRAM
     Route: 048
     Dates: start: 20220103
  21. CIPROFLOXACIN [Concomitant]
     Active Substance: CIPROFLOXACIN
     Indication: Infection prophylaxis
     Dosage: 500 MILLIGRAM
     Route: 048
     Dates: start: 20211231
  22. DESLORATADINE [Concomitant]
     Active Substance: DESLORATADINE
     Indication: Pruritus
     Dosage: 5 MILLIGRAM
     Route: 048
     Dates: start: 20211226
  23. POLYETHYLENE GLYCOL 3350\POTASSIUM CHLORIDE\SODIUM BICARBONATE\SODIUM [Concomitant]
     Active Substance: POLYETHYLENE GLYCOL 3350\POTASSIUM CHLORIDE\SODIUM BICARBONATE\SODIUM CHLORIDE
     Indication: Constipation
     Dosage: 1 DOSAGE FORMS
     Route: 048
     Dates: start: 20211226, end: 20211226
  24. POLYETHYLENE GLYCOL 3350\POTASSIUM CHLORIDE\SODIUM BICARBONATE\SODIUM [Concomitant]
     Active Substance: POLYETHYLENE GLYCOL 3350\POTASSIUM CHLORIDE\SODIUM BICARBONATE\SODIUM CHLORIDE
     Dosage: 1 DOSAGE FORMS
     Route: 048
     Dates: start: 20220103
  25. ACETAMINOPHEN [Concomitant]
     Active Substance: ACETAMINOPHEN
     Indication: Pain
     Dosage: 1500 MILLIGRAM
     Route: 048
     Dates: start: 20211225, end: 20211228
  26. ACETAMINOPHEN [Concomitant]
     Active Substance: ACETAMINOPHEN
     Dosage: 1000 MILLIGRAM
     Route: 048
     Dates: start: 20220105, end: 20220107
  27. ACETAMINOPHEN [Concomitant]
     Active Substance: ACETAMINOPHEN
     Dosage: FREQUENCY TEXT: PRN?500 MILLIGRAM
     Route: 048
     Dates: start: 20220110
  28. EXFORGE HCT [Concomitant]
     Active Substance: AMLODIPINE BESYLATE\HYDROCHLOROTHIAZIDE\VALSARTAN
     Indication: Hypertension
     Dosage: 5/160 MG
     Route: 048
     Dates: start: 202111, end: 20211229
  29. EXFORGE HCT [Concomitant]
     Active Substance: AMLODIPINE BESYLATE\HYDROCHLOROTHIAZIDE\VALSARTAN
     Dosage: FREQUENCY TEXT: ONE HALF EVERY DAY?5/160 MG
     Route: 048
     Dates: start: 20211229, end: 20220124
  30. EXFORGE HCT [Concomitant]
     Active Substance: AMLODIPINE BESYLATE\HYDROCHLOROTHIAZIDE\VALSARTAN
     Dosage: 0.5 MILLIGRAM
     Route: 048
     Dates: start: 20220131
  31. NOVALGIN (METAMIZOLE SODIUM) [Concomitant]
     Active Substance: METAMIZOLE SODIUM
     Indication: Back pain
     Dosage: FREQUENCY TEXT: PRN?500 MILLIGRAM
     Route: 048
     Dates: start: 202110
  32. NOVALGIN (METAMIZOLE SODIUM) [Concomitant]
     Active Substance: METAMIZOLE SODIUM
     Indication: Back pain
     Dosage: 120 DROPS
     Route: 048
     Dates: start: 20211226, end: 20211229
  33. ACETAMINOPHEN [Concomitant]
     Active Substance: ACETAMINOPHEN
     Indication: Back pain
     Dosage: DAILY DOSE : 10 MILLIGRAM/MILLILITERS?UNIT DOSE : 10 MILLIGRAM/MILLILITERS?10 MILLIGRAM/MILLILITERS
     Route: 042
     Dates: start: 20211220, end: 20211220
  34. ACETAMINOPHEN [Concomitant]
     Active Substance: ACETAMINOPHEN
     Dosage: DAILY DOSE : 10 MILLIGRAM/MILLILITERS?UNIT DOSE : 10 MILLIGRAM/MILLILITERS?10 MILLIGRAM/MILLILITERS
     Route: 042
     Dates: start: 20211220, end: 20211220
  35. TRAZODONE HYDROCHLORIDE [Concomitant]
     Active Substance: TRAZODONE HYDROCHLORIDE
     Indication: Insomnia
     Dosage: FREQUENCY TEXT: 0-0-1/3?150 MILLIGRAM
     Route: 048
     Dates: start: 202110
  36. ATORVASTATIN [Concomitant]
     Active Substance: ATORVASTATIN
     Indication: Arteriosclerosis coronary artery
     Dosage: 20 MILLIGRAM
     Route: 048
     Dates: start: 202006
  37. ATORVASTATIN [Concomitant]
     Active Substance: ATORVASTATIN
     Indication: Hypercholesterolaemia
  38. PANTOPRAZOLE SODIUM [Concomitant]
     Active Substance: PANTOPRAZOLE SODIUM
     Indication: Gastric disorder
     Dosage: 40 MILLIGRAM
     Route: 048
     Dates: start: 2017
  39. EUTHYROX [Concomitant]
     Active Substance: LEVOTHYROXINE SODIUM
     Indication: Hypothyroidism
     Dosage: 125 MILLIGRAM
     Route: 048
     Dates: start: 2013
  40. JANUMET [Concomitant]
     Active Substance: METFORMIN HYDROCHLORIDE\SITAGLIPTIN PHOSPHATE
     Indication: Diabetes mellitus
     Dosage: 50/1000MG
     Route: 048
     Dates: start: 2013
  41. JANUMET [Concomitant]
     Active Substance: METFORMIN HYDROCHLORIDE\SITAGLIPTIN PHOSPHATE
     Dosage: 50/1000MG, EVERY 1 DAYS
     Dates: start: 2013
  42. HUMALOG [Concomitant]
     Active Substance: INSULIN LISPRO
     Indication: Type 2 diabetes mellitus
     Dosage: FREQUENCY TEXT: PRN?100 IE/ML (1 AS REQUIRED)
     Route: 048
     Dates: start: 2017

REACTIONS (9)
  - Neutropenia [Recovered/Resolved]
  - Thrombocytopenia [Recovered/Resolved]
  - Leukopenia [Recovered/Resolved]
  - C-reactive protein increased [Recovered/Resolved]
  - Interleukin level increased [Recovered/Resolved]
  - Procalcitonin increased [Recovered/Resolved]
  - Myocardial infarction [Recovered/Resolved]
  - Fatigue [Unknown]
  - Pyrexia [Recovered/Resolved]

NARRATIVE: CASE EVENT DATE: 20220131
